FAERS Safety Report 24582967 (Version 1)
Quarter: 2024Q4

REPORT INFORMATION
  Report Type: Spontaneous
  Country: FR (occurrence: FR)
  Receive Date: 20241106
  Receipt Date: 20241106
  Transmission Date: 20250114
  Serious: Yes (Death, Other)
  Sender: AUROBINDO
  Company Number: FR-AUROBINDO-AUR-APL-2018-035404

PATIENT
  Age: 53 Year
  Sex: Female

DRUGS (10)
  1. PREDNISOLONE [Suspect]
     Active Substance: PREDNISOLONE
     Indication: Immunosuppression
     Dosage: 15 MILLIGRAM, ONCE A DAY, STARTED AT DAY 6-38 POST TRANSPLANTATION15 MILLIGRAM, ONCE A DAY
     Route: 065
  2. PREDNISOLONE [Suspect]
     Active Substance: PREDNISOLONE
     Indication: Prophylaxis against transplant rejection
     Dosage: 10 MILLIGRAM, ONCE A DAY
     Route: 065
  3. MYCOPHENOLATE MOFETIL [Suspect]
     Active Substance: MYCOPHENOLATE MOFETIL
     Indication: Prophylaxis against transplant rejection
     Dosage: 500 MILLIGRAM, ONCE A DAY, STARTED AT DAY 6 POST TRANSPLANTATION
     Route: 065
  4. MYCOPHENOLATE MOFETIL [Suspect]
     Active Substance: MYCOPHENOLATE MOFETIL
     Indication: Immunosuppression
     Dosage: ()
     Route: 065
  5. CYCLOSPORINE [Suspect]
     Active Substance: CYCLOSPORINE
     Indication: Immunosuppression
     Dosage: 800 MILLIGRAM, ONCE A DAY, STARTED AT DAY 6-38 POST TRANSPLANTATION
     Route: 065
  6. CYCLOSPORINE [Suspect]
     Active Substance: CYCLOSPORINE
     Dosage: 300-400 MG/DAY
     Route: 065
  7. BASILIXIMAB [Suspect]
     Active Substance: BASILIXIMAB
     Indication: Immunosuppression
     Dosage: DAY 1-5 POST TRANSPLANTATION ()
     Route: 065
  8. BASILIXIMAB [Suspect]
     Active Substance: BASILIXIMAB
     Indication: Prophylaxis against transplant rejection
     Dosage: DAY 1-5 POST TRANSPLANTATION ()
     Route: 065
  9. BASILIXIMAB [Suspect]
     Active Substance: BASILIXIMAB
     Dosage: ()
     Route: 065
  10. GANCICLOVIR [Suspect]
     Active Substance: GANCICLOVIR
     Indication: Human herpesvirus 6 infection
     Dosage: 900 MILLIGRAM, ONCE A DAY
     Route: 065

REACTIONS (12)
  - Human herpesvirus 6 infection [Fatal]
  - Septic shock [Fatal]
  - Multiple organ dysfunction syndrome [Fatal]
  - Cholangitis [Fatal]
  - Encephalopathy [Fatal]
  - Diarrhoea [Fatal]
  - Epstein-Barr viraemia [Unknown]
  - Intentional product use issue [Unknown]
  - Pancytopenia [Unknown]
  - Herpes simplex [Unknown]
  - Disorientation [Unknown]
  - Transaminases increased [Unknown]
